FAERS Safety Report 11398822 (Version 6)
Quarter: 2015Q4

REPORT INFORMATION
  Report Type: Spontaneous
  Country: US (occurrence: US)
  Receive Date: 20150820
  Receipt Date: 20151001
  Transmission Date: 20160304
  Serious: Yes (Other)
  Sender: FDA-Public Use
  Company Number: US-ROCHE-1623114

PATIENT
  Age: 72 Year
  Sex: Male

DRUGS (4)
  1. ACTIVASE [Suspect]
     Active Substance: ALTEPLASE
     Indication: CEREBROVASCULAR ACCIDENT
     Dosage: OVER 60 MIN
     Route: 065
     Dates: start: 20150817
  2. PLAVIX [Concomitant]
     Active Substance: CLOPIDOGREL BISULFATE
  3. ATORVASTATIN [Concomitant]
     Active Substance: ATORVASTATIN
  4. AMLODIPINE [Concomitant]
     Active Substance: AMLODIPINE BESYLATE

REACTIONS (4)
  - Mental status changes [Unknown]
  - Hyperhidrosis [Unknown]
  - Hypotension [Unknown]
  - Product quality issue [Unknown]

NARRATIVE: CASE EVENT DATE: 20150817
